FAERS Safety Report 20738044 (Version 2)
Quarter: 2022Q2

REPORT INFORMATION
  Report Type: Spontaneous
  Country: US (occurrence: US)
  Receive Date: 20220422
  Receipt Date: 20220506
  Transmission Date: 20220721
  Serious: No
  Sender: FDA-Public Use
  Company Number: US-GSKCCFUS-Case-01354028_AE-78445

PATIENT
  Age: 64 Year
  Sex: Female

DRUGS (1)
  1. NUCALA [Suspect]
     Active Substance: MEPOLIZUMAB
     Indication: Chronic sinusitis
     Dosage: UNK
     Route: 058
     Dates: start: 2021

REACTIONS (4)
  - Sinus disorder [Not Recovered/Not Resolved]
  - Exposure via skin contact [Unknown]
  - Accidental exposure to product [Unknown]
  - Product complaint [Unknown]

NARRATIVE: CASE EVENT DATE: 20220417
